FAERS Safety Report 4819443-7 (Version None)
Quarter: 2005Q4

REPORT INFORMATION
  Report Type: 
  Country: None (occurrence: None)
  Receive Date: 20051103
  Receipt Date: 20051024
  Transmission Date: 20060501
  Serious: Yes (Hospitalization)
  Sender: FDA-Public Use
  Company Number: US-JNJFOC-20051005563

PATIENT
  Age: 16 Year
  Sex: Male
  Weight: 108.86 kg

DRUGS (4)
  1. TOPAMAX [Suspect]
     Route: 048
  2. TOPAMAX [Suspect]
     Dosage: ONCE
     Route: 048
  3. TOPAMAX [Suspect]
     Indication: DRUG USE FOR UNKNOWN INDICATION
     Route: 048
  4. ELIDEL [Concomitant]

REACTIONS (6)
  - CATATONIA [None]
  - DISORIENTATION [None]
  - INCONTINENCE [None]
  - MOOD ALTERED [None]
  - VISION BLURRED [None]
  - WEIGHT DECREASED [None]
